FAERS Safety Report 8217454-5 (Version None)
Quarter: 2012Q1

REPORT INFORMATION
  Report Type: 
  Country: None (occurrence: None)
  Receive Date: 20120301
  Receipt Date: 20120131
  Transmission Date: 20120608
  Serious: Yes (Hospitalization)
  Sender: FDA-Public Use
  Company Number: 2012CP000017

PATIENT
  Age: 79 Year
  Sex: Female

DRUGS (2)
  1. IBUPROFEN [Suspect]
     Indication: PAIN
     Dosage: IV
     Route: 042
     Dates: start: 20120126
  2. OFIRMEV [Suspect]
     Indication: PAIN
     Dosage: IV
     Route: 042
     Dates: start: 20120126, end: 20120126

REACTIONS (4)
  - HYPOTENSION [None]
  - TACHYCARDIA [None]
  - HYPERSENSITIVITY [None]
  - ERYTHEMA [None]
